FAERS Safety Report 25858907 (Version 2)
Quarter: 2025Q4

REPORT INFORMATION
  Report Type: Spontaneous
  Country: US (occurrence: US)
  Receive Date: 20250929
  Receipt Date: 20251104
  Transmission Date: 20260118
  Serious: No
  Sender: ROCHE
  Company Number: US-ROCHE-10000397681

PATIENT
  Age: 72 Year
  Sex: Female

DRUGS (2)
  1. ACTEMRA [Suspect]
     Active Substance: TOCILIZUMAB
     Indication: Rheumatoid arthritis
     Dosage: LIQUID VIAL 200 MG +80 MG
     Route: 042
     Dates: start: 20250925
  2. ACTEMRA [Suspect]
     Active Substance: TOCILIZUMAB
     Route: 042
     Dates: start: 202311

REACTIONS (2)
  - Incorrect drug administration rate [Unknown]
  - No adverse event [Unknown]

NARRATIVE: CASE EVENT DATE: 20250925
